FAERS Safety Report 5195118-2 (Version None)
Quarter: 2006Q4

REPORT INFORMATION
  Report Type: 
  Country: None (occurrence: None)
  Receive Date: 20061229
  Receipt Date: 20061214
  Transmission Date: 20070319
  Serious: Yes (Death, Other)
  Sender: FDA-Public Use
  Company Number: JP-PFIZER INC-2006154112

PATIENT
  Age: 40 Year
  Sex: Male

DRUGS (5)
  1. GABAPEN [Suspect]
     Indication: PARTIAL SEIZURES
     Dosage: DAILY DOSE:600MG
     Route: 048
  2. ANAFRANIL [Concomitant]
     Route: 048
  3. LUVOX [Concomitant]
     Route: 048
  4. DEPAKENE [Concomitant]
     Route: 048
  5. RISPERDAL [Concomitant]
     Route: 048

REACTIONS (1)
  - CARDIAC FAILURE ACUTE [None]
